FAERS Safety Report 13458386 (Version 2)
Quarter: 2017Q4

REPORT INFORMATION
  Report Type: Spontaneous
  Country: US (occurrence: US)
  Receive Date: 20170419
  Receipt Date: 20171219
  Transmission Date: 20180320
  Serious: Yes (Other)
  Sender: FDA-Public Use
  Company Number: ALCN2017US002750

PATIENT
  Age: 68 Year
  Sex: Female
  Weight: 76.19 kg

DRUGS (17)
  1. EPINEPHRINE. [Suspect]
     Active Substance: EPINEPHRINE
     Indication: EYE IRRIGATION
     Route: 065
  2. TROPICAMIDE. [Concomitant]
     Active Substance: TROPICAMIDE
     Indication: PREOPERATIVE CARE
     Route: 065
  3. CEFTAZIDIME. [Concomitant]
     Active Substance: CEFTAZIDIME
     Indication: POSTOPERATIVE CARE
     Route: 065
  4. OFLOXACINE [Concomitant]
     Active Substance: OFLOXACIN
     Indication: PREOPERATIVE CARE
     Route: 065
  5. CYCLOPENTOLATE HYDROCHLORIDE. [Concomitant]
     Active Substance: CYCLOPENTOLATE HYDROCHLORIDE
     Indication: PREOPERATIVE CARE
     Route: 065
  6. PHENYLEPHRINE HYDROCHLORIDE. [Concomitant]
     Active Substance: PHENYLEPHRINE HYDROCHLORIDE
     Indication: PREOPERATIVE CARE
     Route: 065
  7. VIGAMOX [Concomitant]
     Active Substance: MOXIFLOXACIN HYDROCHLORIDE
     Indication: POSTOPERATIVE CARE
     Route: 065
  8. PRED FORTE [Concomitant]
     Active Substance: PREDNISOLONE ACETATE
     Indication: POSTOPERATIVE CARE
     Route: 065
  9. BSS [Suspect]
     Active Substance: CALCIUM CHLORIDE\MAGNESIUM CHLORIDE\POTASSIUM CHLORIDE\SODIUM ACETATE\SODIUM CHLORIDE\SODIUM CITRATE
     Indication: EYE IRRIGATION
     Route: 031
  10. PROLENSA [Suspect]
     Active Substance: BROMFENAC SODIUM
     Indication: PAIN
     Dosage: UNK UNK, QD
     Route: 047
     Dates: start: 20171206
  11. BETADINE [Suspect]
     Active Substance: POVIDONE-IODINE
     Indication: EYE IRRIGATION
     Route: 047
  12. VANCOMYCIN [Concomitant]
     Active Substance: VANCOMYCIN
     Indication: POSTOPERATIVE CARE
     Route: 065
  13. LOTEMAX [Suspect]
     Active Substance: LOTEPREDNOL ETABONATE
     Indication: INFLAMMATION
     Dosage: UNK, TID
     Route: 047
     Dates: start: 20171206
  14. BESIVANCE [Suspect]
     Active Substance: BESIFLOXACIN
     Indication: BACTERIAL INFECTION
     Dosage: UNK, TID
     Route: 047
     Dates: start: 20171206
  15. ATROPA [Concomitant]
     Indication: POSTOPERATIVE CARE
     Route: 065
  16. KETOROLAC [Concomitant]
     Active Substance: KETOROLAC\KETOROLAC TROMETHAMINE
     Indication: PREOPERATIVE CARE
     Route: 065
  17. LIDOCAINE. [Concomitant]
     Active Substance: LIDOCAINE
     Indication: PREOPERATIVE CARE
     Route: 021

REACTIONS (9)
  - Visual impairment [Recovered/Resolved]
  - Visual acuity tests abnormal [Unknown]
  - Hypopyon [Recovering/Resolving]
  - Eye pain [Unknown]
  - Ocular hyperaemia [Unknown]
  - Photophobia [Unknown]
  - Toxic anterior segment syndrome [Recovered/Resolved]
  - Corneal oedema [Recovered/Resolved]
  - Endophthalmitis [Recovering/Resolving]

NARRATIVE: CASE EVENT DATE: 20161214
